FAERS Safety Report 4650212-7 (Version None)
Quarter: 2005Q2

REPORT INFORMATION
  Report Type: 
  Country: None (occurrence: None)
  Receive Date: 20050331
  Receipt Date: 20050203
  Transmission Date: 20051028
  Serious: No
  Sender: FDA-Public Use
  Company Number: 05P-163-0289330-00

PATIENT
  Age: 80 Year
  Sex: Female
  Weight: 48.0813 kg

DRUGS (11)
  1. HUMIRA [Suspect]
     Indication: RHEUMATOID ARTHRITIS
     Dosage: 40 MG, 1 IN 2 WK, SUBCUTANEOUS
     Route: 058
     Dates: start: 20030101
  2. FOLIC ACID [Concomitant]
  3. LEVOTHYROXINE SODIUM [Concomitant]
  4. RISEDRONATE SODIUM [Concomitant]
  5. METHOTREXATE [Concomitant]
  6. MELOXICAM [Concomitant]
  7. CALCIUM GLUCONATE [Concomitant]
  8. ASCORBIC ACID [Concomitant]
  9. TOCOPHEROL CONCENTRATE CAP [Concomitant]
  10. IRON [Concomitant]
  11. CYANOCOBALAMIN [Concomitant]

REACTIONS (1)
  - NASOPHARYNGITIS [None]
